FAERS Safety Report 4358388-6 (Version None)
Quarter: 2004Q2

REPORT INFORMATION
  Report Type: 
  Country: None (occurrence: None)
  Receive Date: 20040511
  Receipt Date: 20040430
  Transmission Date: 20050107
  Serious: Yes (Hospitalization)
  Sender: FDA-Public Use
  Company Number: US-JNJFOC-20040404968

PATIENT
  Age: 39 Year
  Sex: Female
  Weight: 58.9676 kg

DRUGS (6)
  1. TOPAMAX [Suspect]
     Indication: MIGRAINE PROPHYLAXIS
     Dosage: SEE IMAGE
     Route: 048
     Dates: end: 20040422
  2. TOPAMAX [Suspect]
     Indication: MIGRAINE PROPHYLAXIS
     Dosage: SEE IMAGE
     Route: 048
     Dates: start: 20030201
  3. ZOMIG [Concomitant]
  4. LEXAPRO (ALL OTHER THERAPEUTIC PRODUCTS) [Concomitant]
  5. SEROQUIL (QUETIAPINE FUMARATE) [Concomitant]
  6. LITHIUM (LITHIUM) [Concomitant]

REACTIONS (8)
  - AGGRESSION [None]
  - DRUG DEPENDENCE [None]
  - HALLUCINATION, AUDITORY [None]
  - HYPOMANIA [None]
  - MANIA [None]
  - PSYCHOTIC DISORDER [None]
  - SCHIZOPHRENIA [None]
  - TREMOR [None]
